FAERS Safety Report 7093375-9 (Version None)
Quarter: 2010Q4

REPORT INFORMATION
  Report Type: 
  Country: None (occurrence: None)
  Receive Date: 20101102
  Receipt Date: 20101028
  Transmission Date: 20110411
  Serious: Yes (Other)
  Sender: FDA-Public Use
  Company Number: 20108896

PATIENT
  Age: 29 Year
  Sex: Female

DRUGS (1)
  1. LIORESAL [Suspect]
     Indication: MUSCLE SPASTICITY
     Dosage: 800 MCG, DAILY, INTRATHECAL
     Route: 037

REACTIONS (5)
  - DEVICE LEAKAGE [None]
  - SEROMA [None]
  - SKIN ATROPHY [None]
  - WOUND DEHISCENCE [None]
  - WRONG TECHNIQUE IN DRUG USAGE PROCESS [None]
